FAERS Safety Report 6418106-4 (Version None)
Quarter: 2009Q4

REPORT INFORMATION
  Report Type: 
  Country: None (occurrence: None)
  Receive Date: 20091028
  Receipt Date: 20091020
  Transmission Date: 20100525
  Serious: Yes (Other)
  Sender: FDA-Public Use
  Company Number: FR-PFIZER INC-2009288796

PATIENT
  Age: 41 Year

DRUGS (9)
  1. ATARAX [Suspect]
     Dosage: 400 MG, 1X/DAY
     Route: 048
  2. ATARAX [Suspect]
     Dosage: 300 MG, 1X/DAY
     Route: 048
     Dates: end: 20090401
  3. EFFEXOR [Suspect]
     Indication: DEPRESSION
     Dosage: 150 MG, 2X/DAY
     Dates: start: 20071202, end: 20090401
  4. EFFEXOR [Suspect]
     Dosage: 150 MG, 1X/DAY
     Route: 048
     Dates: start: 20090501, end: 20090525
  5. OFLOCET [Suspect]
     Dosage: UNK
     Dates: start: 20090401, end: 20090401
  6. INSULIN [Concomitant]
     Indication: TYPE 1 DIABETES MELLITUS
  7. ALPRAZOLAM [Concomitant]
     Dosage: 3 MG, DAILY
     Dates: end: 20090401
  8. THERALENE [Concomitant]
     Dosage: UNK
     Dates: end: 20090401
  9. MEPRONIZINE [Concomitant]
     Dosage: UNK
     Dates: end: 20090401

REACTIONS (10)
  - BLOOD ALKALINE PHOSPHATASE [None]
  - CONDITION AGGRAVATED [None]
  - DEPRESSION [None]
  - DRUG WITHDRAWAL SYNDROME [None]
  - GAMMA-GLUTAMYLTRANSFERASE INCREASED [None]
  - HEADACHE [None]
  - NAUSEA [None]
  - TRANSAMINASES INCREASED [None]
  - TREMOR [None]
  - VERTIGO [None]
